FAERS Safety Report 8924400 (Version 1)
Quarter: 2012Q4

REPORT INFORMATION
  Report Type: Report from Study
  Country: JP (occurrence: JP)
  Receive Date: 20121127
  Receipt Date: 20121127
  Transmission Date: 20130627
  Serious: Yes (Hospitalization)
  Sender: FDA-Public Use
  Company Number: JP-009507513-2012SP026655

PATIENT
  Age: 67 Year
  Sex: Female
  Weight: 51 kg

DRUGS (12)
  1. PEGINTERFERON ALFA-2B [Suspect]
     Indication: CHRONIC HEPATITIS C
     Dosage: 1.5 ?g/kg, QW
     Route: 058
     Dates: start: 20120127, end: 20120316
  2. PEGINTERFERON ALFA-2B [Suspect]
     Dosage: 0.75 ?g/kg, QW
     Route: 058
     Dates: start: 20120323, end: 20120713
  3. REBETOL [Suspect]
     Indication: CHRONIC HEPATITIS C
     Dosage: 600 mg, QD
     Route: 048
     Dates: start: 20120127, end: 20120223
  4. REBETOL [Suspect]
     Dosage: 400 mg, QD
     Route: 048
     Dates: start: 20120224, end: 20120322
  5. REBETOL [Suspect]
     Dosage: 200 mg, QD
     Route: 048
     Dates: start: 20120323, end: 20120408
  6. REBETOL [Suspect]
     Dosage: 400 mg, QD
     Route: 048
     Dates: start: 20120409, end: 20120713
  7. TELAVIC [Suspect]
     Indication: CHRONIC HEPATITIS C
     Dosage: 1500 mg, QD
     Route: 048
     Dates: start: 20120127, end: 20120315
  8. TELAVIC [Suspect]
     Dosage: 1000 mg, QD
     Route: 048
     Dates: start: 20120316, end: 20120420
  9. DOGMATYL [Concomitant]
     Indication: PROPHYLAXIS
     Dosage: 50 mg, qd
     Route: 048
     Dates: start: 20120210
  10. CYTOTEC [Concomitant]
     Indication: PROPHYLAXIS
     Dosage: 200 mcg/day as needed
     Route: 048
     Dates: start: 20120127
  11. CYTOTEC [Concomitant]
     Dosage: 200 mg/day as needed
     Route: 048
     Dates: end: 20120427
  12. [THERAPY UNSPECIFIED] [Concomitant]
     Dosage: UNK
     Route: 042
     Dates: start: 20120405, end: 20120405

REACTIONS (2)
  - Anaemia [Recovering/Resolving]
  - Nausea [Recovering/Resolving]
